FAERS Safety Report 9831861 (Version 1)
Quarter: 2014Q1

REPORT INFORMATION
  Report Type: Spontaneous
  Country: PT (occurrence: PT)
  Receive Date: 20140121
  Receipt Date: 20140121
  Transmission Date: 20141002
  Serious: Yes (Other)
  Sender: FDA-Public Use
  Company Number: PHHY2014PT005958

PATIENT
  Age: 64 Year
  Sex: Male

DRUGS (1)
  1. ZOLEDRONIC ACID [Suspect]
     Indication: LUNG ADENOCARCINOMA STAGE IV
     Dosage: 4 MG, EVERY THREE WEEKS
     Route: 042
     Dates: end: 201206

REACTIONS (2)
  - Osteonecrosis of jaw [Recovering/Resolving]
  - Dysaesthesia [Recovering/Resolving]
